FAERS Safety Report 5883645-1 (Version None)
Quarter: 2008Q3

REPORT INFORMATION
  Report Type: 
  Country: None (occurrence: None)
  Receive Date: 20080915
  Receipt Date: 20080830
  Transmission Date: 20090109
  Serious: Yes (Life-Threatening, Hospitalization, Other)
  Sender: FDA-Public Use
  Company Number: DE-BAYER-200825930GPV

PATIENT
  Age: 62 Year
  Sex: Female
  Weight: 61 kg

DRUGS (9)
  1. FLUDARABINE PHOSPHATE [Suspect]
     Indication: CHRONIC LYMPHOCYTIC LEUKAEMIA
     Route: 065
     Dates: start: 20030601, end: 20030601
  2. FLUDARABINE PHOSPHATE [Suspect]
  3. CHLORAMBUCIL [Suspect]
     Indication: CHRONIC LYMPHOCYTIC LEUKAEMIA
     Route: 065
     Dates: end: 20030501
  4. CHLORAMBUCIL [Suspect]
     Route: 065
     Dates: start: 20030101, end: 20030901
  5. RITUXIMAB [Suspect]
     Indication: CHRONIC LYMPHOCYTIC LEUKAEMIA
     Route: 065
  6. RITUXIMAB [Suspect]
     Route: 065
  7. RITUXIMAB [Suspect]
     Route: 065
  8. RITUXIMAB [Suspect]
     Route: 065
     Dates: start: 20040401
  9. CYCLOPHOSPHAMIDE [Suspect]
     Indication: CHRONIC LYMPHOCYTIC LEUKAEMIA

REACTIONS (10)
  - ANAEMIA [None]
  - BONE MARROW FAILURE [None]
  - CHOLECYSTITIS [None]
  - LEUKOPENIA [None]
  - NEUTROPENIA [None]
  - PNEUMONIA [None]
  - PYREXIA [None]
  - RETINAL HAEMORRHAGE [None]
  - SECONDARY IMMUNODEFICIENCY [None]
  - THROMBOCYTOPENIA [None]
